FAERS Safety Report 9952756 (Version 1)
Quarter: 2014Q1

REPORT INFORMATION
  Report Type: Report from Study
  Country: US (occurrence: US)
  Receive Date: 20140304
  Receipt Date: 20140304
  Transmission Date: 20141002
  Serious: Yes (Other)
  Sender: FDA-Public Use
  Company Number: US-ABBVIE-13P-163-1071122-00

PATIENT
  Sex: Male

DRUGS (1)
  1. HUMIRA [Suspect]
     Indication: RHEUMATOID ARTHRITIS
     Dosage: 0.8 ML (40 MG) EVERY 14 DAYS OR 2 WEEKS
     Route: 058

REACTIONS (2)
  - Coronary arterial stent insertion [Unknown]
  - Herpes zoster [Unknown]
